FAERS Safety Report 16979377 (Version 2)
Quarter: 2019Q4

REPORT INFORMATION
  Report Type: Spontaneous
  Country: ES (occurrence: ES)
  Receive Date: 20191031
  Receipt Date: 20191121
  Transmission Date: 20200122
  Serious: Yes (Death)
  Sender: FDA-Public Use
  Company Number: ES-JNJFOC-20191035843

PATIENT
  Age: 42 Year
  Sex: Male

DRUGS (7)
  1. TARGIN [Concomitant]
     Active Substance: NALOXONE HYDROCHLORIDE\OXYCODONE HYDROCHLORIDE
     Indication: PRODUCT USED FOR UNKNOWN INDICATION
     Dosage: 10 MG/5 MG
     Route: 048
     Dates: start: 201510, end: 201603
  2. DULOXETINA                         /01749301/ [Concomitant]
     Active Substance: DULOXETINE
     Indication: PRODUCT USED FOR UNKNOWN INDICATION
     Route: 048
     Dates: start: 201802
  3. LEXATIN                            /00424801/ [Concomitant]
     Active Substance: BROMAZEPAM
     Indication: PRODUCT USED FOR UNKNOWN INDICATION
     Route: 048
     Dates: start: 201409
  4. TAPENTADOL HYDROCHLORIDE [Concomitant]
     Active Substance: TAPENTADOL HYDROCHLORIDE
     Indication: BACK PAIN
     Route: 048
     Dates: start: 201401
  5. DUROGESIC MATRIX [Suspect]
     Active Substance: FENTANYL
     Indication: BACK PAIN
     Dosage: 50 MICROGRAMOS
     Route: 062
     Dates: start: 201710
  6. LYRICA [Concomitant]
     Active Substance: PREGABALIN
     Indication: BACK PAIN
     Route: 048
     Dates: start: 201401
  7. DUROGESIC MATRIX [Suspect]
     Active Substance: FENTANYL
     Route: 055
     Dates: end: 20190911

REACTIONS (3)
  - Sudden death [Fatal]
  - Product use issue [Fatal]
  - Drug abuse [Fatal]

NARRATIVE: CASE EVENT DATE: 2019
